FAERS Safety Report 15822379 (Version 1)
Quarter: 2019Q1

REPORT INFORMATION
  Report Type: Spontaneous
  Country: IT (occurrence: IT)
  Receive Date: 20190114
  Receipt Date: 20190114
  Transmission Date: 20190417
  Serious: Yes (Death)
  Sender: FDA-Public Use
  Company Number: IT-TEVA-2019-IT-997669

PATIENT
  Age: 63 Year
  Sex: Female

DRUGS (1)
  1. GEMCITABINE [Suspect]
     Active Substance: GEMCITABINE\GEMCITABINE HYDROCHLORIDE
     Indication: OVARIAN NEOPLASM
     Route: 041

REACTIONS (4)
  - Septic shock [Fatal]
  - Pneumonia pneumococcal [Fatal]
  - Sepsis [Fatal]
  - Neutropenia [Fatal]
